FAERS Safety Report 14037455 (Version 1)
Quarter: 2017Q4

REPORT INFORMATION
  Report Type: Spontaneous
  Country: AU (occurrence: AU)
  Receive Date: 20171004
  Receipt Date: 20171004
  Transmission Date: 20180321
  Serious: Yes (Other)
  Sender: FDA-Public Use
  Company Number: AU-ACCORD-059450

PATIENT
  Age: 24 Year
  Sex: Male

DRUGS (4)
  1. CISPLATIN. [Suspect]
     Active Substance: CISPLATIN
     Indication: TESTICULAR EMBRYONAL CARCINOMA STAGE I
     Dates: start: 2015
  2. ETOPOSIDE. [Concomitant]
     Active Substance: ETOPOSIDE
     Indication: TESTICULAR EMBRYONAL CARCINOMA STAGE I
     Dates: start: 2015
  3. IRBESARTAN. [Concomitant]
     Active Substance: IRBESARTAN
     Indication: IGA NEPHROPATHY
  4. BLEOMYCIN [Concomitant]
     Active Substance: BLEOMYCIN SULFATE
     Indication: TESTICULAR EMBRYONAL CARCINOMA STAGE I
     Dates: start: 2015

REACTIONS (1)
  - Proteinuria [Recovering/Resolving]
